FAERS Safety Report 20362911 (Version 1)
Quarter: 2022Q1

REPORT INFORMATION
  Report Type: Report from Study
  Country: FR (occurrence: FR)
  Receive Date: 20220121
  Receipt Date: 20220121
  Transmission Date: 20220423
  Serious: Yes (Other)
  Sender: FDA-Public Use
  Company Number: FR-AMGEN-FRASP2022005182

PATIENT
  Age: 56 Year
  Sex: Female

DRUGS (2)
  1. AMG-510 [Suspect]
     Active Substance: AMG-510
     Indication: Lung cancer metastatic
     Dosage: 240 MILLIGRAM, QD
     Route: 065
     Dates: start: 20210929
  2. AMG-510 [Suspect]
     Active Substance: AMG-510
     Dosage: UNK (LOWER DOSE)
     Route: 065
     Dates: end: 20211213

REACTIONS (2)
  - Hepatic cytolysis [Unknown]
  - Diarrhoea [Unknown]

NARRATIVE: CASE EVENT DATE: 20211123
